FAERS Safety Report 12872789 (Version 28)
Quarter: 2020Q1

REPORT INFORMATION
  Report Type: Report from Study
  Country: CA (occurrence: CA)
  Receive Date: 20161021
  Receipt Date: 20200321
  Transmission Date: 20200409
  Serious: Yes (Life-Threatening, Other)
  Sender: FDA-Public Use
  Company Number: CA-ROCHE-1843215

PATIENT
  Age: 63 Year
  Sex: Female
  Weight: 80.9 kg

DRUGS (26)
  1. XOLAIR [Suspect]
     Active Substance: OMALIZUMAB
     Dosage: UNK
     Route: 058
     Dates: start: 20171030
  2. APO-CLONIDINE [Concomitant]
     Active Substance: CLONIDINE HYDROCHLORIDE
     Indication: MUSCLE SPASMS
     Dosage: 200 MG, UNK
     Route: 065
  3. XOLAIR [Suspect]
     Active Substance: OMALIZUMAB
     Dosage: UNK
     Route: 058
     Dates: start: 20160818
  4. XOLAIR [Suspect]
     Active Substance: OMALIZUMAB
     Dosage: UNK
     Route: 058
     Dates: start: 20161110, end: 20161111
  5. XOLAIR [Suspect]
     Active Substance: OMALIZUMAB
     Route: 058
     Dates: start: 20180522
  6. XOLAIR [Suspect]
     Active Substance: OMALIZUMAB
     Route: 058
     Dates: start: 20180911
  7. XOLAIR [Suspect]
     Active Substance: OMALIZUMAB
     Route: 058
     Dates: start: 20181218, end: 20181218
  8. XOLAIR [Suspect]
     Active Substance: OMALIZUMAB
     Route: 058
     Dates: start: 20191118
  9. XOLAIR [Suspect]
     Active Substance: OMALIZUMAB
     Dosage: UNK
     Route: 058
     Dates: start: 20160915
  10. XOLAIR [Suspect]
     Active Substance: OMALIZUMAB
     Route: 058
     Dates: start: 20181107
  11. REACTINE [CETIRIZINE HYDROCHLORIDE] [Concomitant]
     Active Substance: CETIRIZINE HYDROCHLORIDE
     Indication: PRODUCT USED FOR UNKNOWN INDICATION
     Dosage: 2 DF, QD
     Route: 065
     Dates: start: 20160301
  12. CETIRIZINE [Concomitant]
     Active Substance: CETIRIZINE HYDROCHLORIDE
     Dosage: 20 MG, BID
     Route: 065
  13. CYMBALTA [Concomitant]
     Active Substance: DULOXETINE HYDROCHLORIDE
     Indication: PRODUCT USED FOR UNKNOWN INDICATION
     Dosage: 30 MG, UNK
     Route: 065
  14. SEROQUEL [Concomitant]
     Active Substance: QUETIAPINE FUMARATE
     Indication: PRODUCT USED FOR UNKNOWN INDICATION
     Dosage: 25 MG, UNK
     Route: 065
  15. SERC [BETAHISTINE HYDROCHLORIDE] [Concomitant]
     Indication: PRODUCT USED FOR UNKNOWN INDICATION
     Dosage: 1 DF, UNK
     Route: 048
     Dates: start: 20170919, end: 20180919
  16. XOLAIR [Suspect]
     Active Substance: OMALIZUMAB
     Dosage: UNK
     Route: 058
     Dates: start: 20171130
  17. XOLAIR [Suspect]
     Active Substance: OMALIZUMAB
     Route: 058
     Dates: start: 20181011
  18. BENADRYL [Concomitant]
     Active Substance: DIPHENHYDRAMINE HYDROCHLORIDE
     Indication: PRODUCT USED FOR UNKNOWN INDICATION
     Dosage: UNK
     Route: 065
  19. SERC [BETAHISTINE HYDROCHLORIDE] [Concomitant]
     Dosage: 3 DF, UNK
     Route: 048
     Dates: start: 20180919
  20. XOLAIR [Suspect]
     Active Substance: OMALIZUMAB
     Route: 058
     Dates: start: 20180614
  21. ENABLEX [Concomitant]
     Active Substance: DARIFENACIN HYDROBROMIDE
     Indication: PRODUCT USED FOR UNKNOWN INDICATION
     Route: 065
  22. XOLAIR [Suspect]
     Active Substance: OMALIZUMAB
     Dosage: UNK
     Route: 058
     Dates: start: 20161013
  23. XOLAIR [Suspect]
     Active Substance: OMALIZUMAB
     Route: 058
     Dates: start: 20180419
  24. ATARAX [Concomitant]
     Active Substance: HYDROXYZINE HYDROCHLORIDE
     Indication: PRODUCT USED FOR UNKNOWN INDICATION
     Dosage: 1 DF, QD
     Route: 065
     Dates: start: 20160101
  25. XOLAIR [Suspect]
     Active Substance: OMALIZUMAB
     Indication: CHRONIC SPONTANEOUS URTICARIA
     Route: 058
     Dates: start: 20160721
  26. CETIRIZINE [Concomitant]
     Active Substance: CETIRIZINE HYDROCHLORIDE
     Indication: URTICARIA
     Dosage: (MORNING)
     Route: 065

REACTIONS (38)
  - Insomnia [Recovering/Resolving]
  - Asthma [Unknown]
  - Feeling abnormal [Unknown]
  - Vomiting [Unknown]
  - Drug hypersensitivity [Unknown]
  - Sinusitis [Unknown]
  - Weight decreased [Unknown]
  - Balance disorder [Unknown]
  - Wrist fracture [Unknown]
  - Bone pain [Unknown]
  - Gout [Unknown]
  - Urticaria [Not Recovered/Not Resolved]
  - Visual field defect [Unknown]
  - Pain [Unknown]
  - Fatigue [Recovering/Resolving]
  - Depression [Unknown]
  - Headache [Not Recovered/Not Resolved]
  - Meniere^s disease [Unknown]
  - Injection site pain [Unknown]
  - Road traffic accident [Unknown]
  - Drug ineffective [Unknown]
  - Lower limb fracture [Unknown]
  - Suicidal ideation [Unknown]
  - Toothache [Unknown]
  - Malaise [Not Recovered/Not Resolved]
  - Nausea [Recovered/Resolved]
  - Fatigue [Unknown]
  - Oral contusion [Recovering/Resolving]
  - Dizziness [Unknown]
  - Feeling hot [Recovered/Resolved]
  - Musculoskeletal chest pain [Unknown]
  - Contusion [Recovering/Resolving]
  - Ear discomfort [Unknown]
  - Fall [Unknown]
  - Injury [Unknown]
  - Ear pain [Unknown]
  - Asthenia [Not Recovered/Not Resolved]
  - Pruritus [Not Recovered/Not Resolved]

NARRATIVE: CASE EVENT DATE: 20160721
